FAERS Safety Report 10993458 (Version 1)
Quarter: 2015Q2

REPORT INFORMATION
  Report Type: Spontaneous
  Country: US (occurrence: None)
  Receive Date: 20150406
  Receipt Date: 20150406
  Transmission Date: 20150821
  Serious: No
  Sender: FDA-Public Use
  Company Number: None

PATIENT
  Age: 5 Year
  Sex: Female
  Weight: 21.77 kg

DRUGS (2)
  1. CHEWABLE MULTI-VITAMIN, CHILDREN^S [Concomitant]
  2. AMOX TR-K CLV [Suspect]
     Active Substance: AMOXICILLIN\CLAVULANATE POTASSIUM
     Indication: STAPHYLOCOCCAL INFECTION
     Dosage: 1 PILL
     Route: 048
     Dates: start: 20150402, end: 20150404

REACTIONS (5)
  - Sleep disorder [None]
  - Sleep terror [None]
  - Fatigue [None]
  - Somnambulism [None]
  - Abnormal behaviour [None]

NARRATIVE: CASE EVENT DATE: 20150404
